FAERS Safety Report 19216580 (Version 2)
Quarter: 2021Q2

REPORT INFORMATION
  Report Type: Spontaneous
  Country: CH (occurrence: CH)
  Receive Date: 20210505
  Receipt Date: 20210510
  Transmission Date: 20210717
  Serious: Yes (Other)
  Sender: FDA-Public Use
  Company Number: CH-MYLANLABS-2021M1026299

PATIENT
  Age: 49 Year
  Sex: Female

DRUGS (8)
  1. METAMIZOLE [Concomitant]
     Active Substance: METAMIZOLE
     Indication: PAIN
     Dosage: 500 MILLIGRAM, PRN AS NEEDED
     Route: 065
  2. PANTOPRAZOLE [Interacting]
     Active Substance: PANTOPRAZOLE
     Indication: PRODUCT USED FOR UNKNOWN INDICATION
     Dosage: 20 MILLIGRAM, QD
     Route: 065
  3. TAMOXIFEN [Interacting]
     Active Substance: TAMOXIFEN
     Indication: BREAST CANCER RECURRENT
     Dosage: 20 MILLIGRAM FOR 24 MONTHS
     Route: 065
  4. MISTLETOE [Concomitant]
     Active Substance: VISCUM ALBUM FRUITING TOP
     Indication: PHYTOTHERAPY
     Dosage: PRN AS NEEDED
     Route: 065
  5. LEUPRORELIN [Concomitant]
     Active Substance: LEUPROLIDE ACETATE
     Indication: BREAST CANCER RECURRENT
     Dosage: 2.75 MILLIGRAM, MONTHLY
     Route: 065
  6. IBUPROFEN. [Suspect]
     Active Substance: IBUPROFEN
     Indication: PAIN
     Dosage: 600 MILLIGRAM, PRN  AS NEEDED: 0.5?0.5?0.5
     Route: 065
  7. LORAZEPAM. [Concomitant]
     Active Substance: LORAZEPAM
     Indication: INITIAL INSOMNIA
     Dosage: 1 MILLIGRAM, PRN AS NEEDED
     Route: 065
  8. LETROZOLE. [Concomitant]
     Active Substance: LETROZOLE
     Indication: BREAST CANCER RECURRENT
     Dosage: 2.5 MILLIGRAM, QD
     Route: 065

REACTIONS (5)
  - Hot flush [Unknown]
  - Impaired work ability [Unknown]
  - Mental disorder [Unknown]
  - Hyperhidrosis [Unknown]
  - Drug interaction [Unknown]
